FAERS Safety Report 9785647 (Version 3)
Quarter: 2014Q1

REPORT INFORMATION
  Report Type: Spontaneous
  Country: JP (occurrence: JP)
  Receive Date: 20131227
  Receipt Date: 20140109
  Transmission Date: 20141002
  Serious: Yes (Other)
  Sender: FDA-Public Use
  Company Number: JP-PFIZER INC-2013341027

PATIENT
  Age: 52 Year
  Sex: Male

DRUGS (23)
  1. LYRICA [Suspect]
     Indication: DIABETES MELLITUS
     Dosage: 25 MG, DAILY
     Route: 048
     Dates: start: 20120310, end: 20120720
  2. LYRICA [Suspect]
     Indication: PAIN
     Dosage: 25 MG, 2X/DAY
     Route: 048
     Dates: start: 20120721, end: 20130828
  3. LYRICA [Suspect]
     Dosage: 75 MG, 1X/DAY
     Route: 048
     Dates: start: 20130829, end: 20131211
  4. LYRICA [Suspect]
     Dosage: 25 MG, 1X/DAY
     Dates: start: 20131212
  5. BAYASPIRIN [Concomitant]
     Dosage: 100 MG, 1X/DAY
     Route: 048
     Dates: start: 20130822
  6. PLAVIX [Concomitant]
     Dosage: 75 MG, 1X/DAY
     Route: 048
     Dates: start: 20130822
  7. PARIET [Concomitant]
     Dosage: 10 MG, 1X/DAY
     Route: 048
     Dates: start: 20130822
  8. AZILVA [Concomitant]
     Dosage: 20 MG, 1X/DAY
     Route: 048
     Dates: start: 20130822
  9. ZETIA [Concomitant]
     Dosage: 10 MG, 1X/DAY
     Route: 048
     Dates: start: 20130822
  10. FEBURIC [Concomitant]
     Dosage: 20 MG, 1X/DAY
     Route: 048
     Dates: start: 20130822
  11. MAG-LAX [Concomitant]
     Dosage: UNK
     Route: 048
     Dates: start: 20130822
  12. ITOROL [Concomitant]
     Dosage: 40 MG, 1X/DAY
     Route: 048
     Dates: start: 20130822
  13. MAINHEART [Concomitant]
     Dosage: 2.5 MG, 2X/DAY
     Route: 048
     Dates: start: 20130822
  14. PERYCIT [Concomitant]
     Dosage: 750 MG, 1X/DAY
     Route: 048
     Dates: start: 20130822
  15. PRORENAL [Concomitant]
     Dosage: 10 UG, 3X/DAY
     Route: 048
  16. FOSRENOL [Concomitant]
     Dosage: 50 MG, 3X/DAY
     Route: 048
  17. EPADEL [Concomitant]
     Dosage: 900 MG, 2X/DAY
     Route: 048
  18. GASMOTIN [Concomitant]
     Dosage: 1 DF, 3X/DAY
     Route: 048
  19. BI SIFROL [Concomitant]
     Dosage: 0.25 MG, 1X/DAY
     Route: 048
  20. ALLELOCK [Concomitant]
     Dosage: 11 MG, 2X/DAY
     Route: 048
  21. LENDORMIN [Concomitant]
     Dosage: 0.5 MG, 1X/DAY
     Route: 048
  22. PHOSBLOCK [Concomitant]
     Dosage: UNK
  23. SIGMART [Concomitant]
     Dosage: UNK

REACTIONS (3)
  - Off label use [Unknown]
  - Loss of consciousness [Recovered/Resolved]
  - Burning sensation [Unknown]
